FAERS Safety Report 10225920 (Version 1)
Quarter: 2014Q2

REPORT INFORMATION
  Report Type: Spontaneous
  Country: US (occurrence: US)
  Receive Date: 20140609
  Receipt Date: 20140609
  Transmission Date: 20141212
  Serious: No
  Sender: FDA-Public Use
  Company Number: US-ASTELLAS-2013US004486

PATIENT
  Sex: Female

DRUGS (2)
  1. PROGRAF [Suspect]
     Indication: AUTOIMMUNE HEPATITIS
     Route: 048
     Dates: start: 2010
  2. CELLCEPT                           /01275102/ [Concomitant]
     Indication: AUTOIMMUNE HEPATITIS
     Route: 065
     Dates: start: 2010

REACTIONS (1)
  - Off label use [Unknown]
